FAERS Safety Report 6540394-4 (Version None)
Quarter: 2010Q1

REPORT INFORMATION
  Report Type: 
  Country: None (occurrence: None)
  Receive Date: 20100113
  Receipt Date: 20091230
  Transmission Date: 20100710
  Serious: Yes (Other)
  Sender: FDA-Public Use
  Company Number: US-1180329

PATIENT
  Sex: Male

DRUGS (2)
  1. BSS [Suspect]
     Indication: INTRAOCULAR LENS IMPLANT
     Dosage: 500 ML INTRAOCULAR
     Route: 031
     Dates: start: 20091223, end: 20091223
  2. EPINEPHRINE [Concomitant]

REACTIONS (1)
  - CORNEAL OPACITY [None]
